FAERS Safety Report 9900473 (Version 2)
Quarter: 2014Q1

REPORT INFORMATION
  Report Type: Spontaneous
  Country: CA (occurrence: CA)
  Receive Date: 20140217
  Receipt Date: 20140326
  Transmission Date: 20141002
  Serious: Yes (Other)
  Sender: FDA-Public Use
  Company Number: CA-AMGEN-CANSP2014010269

PATIENT
  Age: 79 Year
  Sex: Male
  Weight: 73.92 kg

DRUGS (3)
  1. PROLIA [Suspect]
     Indication: OSTEOPOROSIS
     Dosage: 60 MG, Q6MO
     Route: 058
     Dates: start: 20140203
  2. CELEXA                             /00582602/ [Concomitant]
     Indication: ANXIETY
     Dosage: 10 MG, BID
     Route: 048
  3. CALCIUM [Concomitant]
     Dosage: UNK UNK, BID
     Route: 048

REACTIONS (3)
  - Faecaloma [Recovered/Resolved]
  - Musculoskeletal stiffness [Unknown]
  - Pain in extremity [Unknown]
